FAERS Safety Report 19633814 (Version 2)
Quarter: 2021Q3

REPORT INFORMATION
  Report Type: Report from Study
  Country: None (occurrence: US)
  Receive Date: 20210730
  Receipt Date: 20210810
  Transmission Date: 20211014
  Serious: Yes (Other)
  Sender: FDA-Public Use
  Company Number: US-ABBVIE-21K-163-4010670-00

PATIENT
  Sex: Male
  Weight: 70.37 kg

DRUGS (1)
  1. CREON [Suspect]
     Active Substance: PANCRELIPASE AMYLASE\PANCRELIPASE LIPASE\PANCRELIPASE PROTEASE
     Indication: PRODUCT USED FOR UNKNOWN INDICATION
     Dosage: INCREASED TO 14 PILLS A DAY
     Route: 048
     Dates: start: 2017

REACTIONS (5)
  - Weight decreased [Unknown]
  - Pancreatic carcinoma [Recovered/Resolved]
  - Decreased appetite [Unknown]
  - Pancreatic carcinoma recurrent [Unknown]
  - Body height decreased [Unknown]

NARRATIVE: CASE EVENT DATE: 2017
